FAERS Safety Report 19079932 (Version 1)
Quarter: 2021Q2

REPORT INFORMATION
  Report Type: Spontaneous
  Country: CA (occurrence: CA)
  Receive Date: 20210401
  Receipt Date: 20210401
  Transmission Date: 20210717
  Serious: Yes (Other)
  Sender: FDA-Public Use
  Company Number: CA-AUROBINDO-AUR-APL-2021-013464

PATIENT
  Age: 69 Year
  Sex: Female

DRUGS (4)
  1. REMICADE [Suspect]
     Active Substance: INFLIXIMAB
     Indication: RHEUMATOID ARTHRITIS
     Dosage: 500 MILLIGRAM 1 EVERY 8 WEEKS
     Route: 042
  2. REMICADE [Suspect]
     Active Substance: INFLIXIMAB
     Indication: CROHN^S DISEASE
  3. AMOXICILLIN. [Suspect]
     Active Substance: AMOXICILLIN
     Indication: KIDNEY INFECTION
     Dosage: 125 MILLIGRAM
     Route: 065
  4. CLAVULIN [Suspect]
     Active Substance: AMOXICILLIN\CLAVULANATE POTASSIUM
     Indication: KIDNEY INFECTION
     Dosage: 125 MILLIGRAM
     Route: 065

REACTIONS (2)
  - Kidney infection [Recovered/Resolved]
  - Diarrhoea [Recovered/Resolved]
